FAERS Safety Report 5074571-9 (Version None)
Quarter: 2006Q3

REPORT INFORMATION
  Report Type: 
  Country: None (occurrence: None)
  Receive Date: 20060808
  Receipt Date: 20050803
  Transmission Date: 20061208
  Serious: Yes (Other)
  Sender: FDA-Public Use
  Company Number: US-AMGEN-KDL145465

PATIENT
  Age: 93 Year
  Sex: Female
  Weight: 49.9 kg

DRUGS (5)
  1. PROCRIT [Suspect]
     Indication: ANAEMIA OF MALIGNANT DISEASE
     Route: 058
     Dates: start: 20050729
  2. BLOOD CELLS, PACKED HUMAN [Concomitant]
  3. SYNTHROID [Concomitant]
  4. CAPTOPRIL [Concomitant]
  5. LASIX [Concomitant]

REACTIONS (4)
  - BONE PAIN [None]
  - HYPERSENSITIVITY [None]
  - JOINT SWELLING [None]
  - RASH [None]
